FAERS Safety Report 21037236 (Version 5)
Quarter: 2022Q4

REPORT INFORMATION
  Report Type: Other
  Country: JP (occurrence: JP)
  Receive Date: 20220703
  Receipt Date: 20221103
  Transmission Date: 20230113
  Serious: Yes (Hospitalization, Other)
  Sender: FDA-Public Use
  Company Number: JP-CHUGAI-2021033093

PATIENT
  Age: 73 Year
  Sex: Male
  Weight: 58.2 kg

DRUGS (6)
  1. ATEZOLIZUMAB [Suspect]
     Active Substance: ATEZOLIZUMAB
     Indication: Large cell lung cancer
     Route: 041
     Dates: start: 20210702, end: 20211125
  2. ATEZOLIZUMAB [Suspect]
     Active Substance: ATEZOLIZUMAB
     Route: 041
     Dates: start: 20220414
  3. CARBOPLATIN [Concomitant]
     Active Substance: CARBOPLATIN
     Indication: Large cell lung cancer
     Dosage: 441 MILLIGRAM
     Route: 041
     Dates: start: 20210702, end: 20210726
  4. CARBOPLATIN [Concomitant]
     Active Substance: CARBOPLATIN
     Dosage: 352 MILLIGRAM
     Route: 041
     Dates: start: 20210826, end: 20210916
  5. PACLITAXEL [Concomitant]
     Active Substance: PACLITAXEL
     Indication: Large cell lung cancer
     Dosage: 160 MILLIGRAM
     Route: 041
     Dates: start: 20210702
  6. PACLITAXEL [Concomitant]
     Active Substance: PACLITAXEL
     Dosage: 120 MILLIGRAM
     Route: 041
     Dates: start: 20210726, end: 20210924

REACTIONS (3)
  - Neutrophil count decreased [Recovered/Resolved]
  - Pulmonary toxicity [Not Recovered/Not Resolved]
  - Renal impairment [Recovered/Resolved]

NARRATIVE: CASE EVENT DATE: 20210715
